FAERS Safety Report 4565367-2 (Version None)
Quarter: 2005Q1

REPORT INFORMATION
  Report Type: 
  Country: None (occurrence: None)
  Receive Date: 20050126
  Receipt Date: 20050110
  Transmission Date: 20050727
  Serious: Yes (Other)
  Sender: FDA-Public Use
  Company Number: US_0501110050

PATIENT
  Age: 15 Year
  Sex: Male
  Weight: 47 kg

DRUGS (3)
  1. PROZAC [Suspect]
  2. PROZAC [Concomitant]
  3. WELLBUTRIN [Concomitant]

REACTIONS (2)
  - DRUG INTERACTION [None]
  - GRAND MAL CONVULSION [None]
